FAERS Safety Report 7128201-2 (Version None)
Quarter: 2010Q4

REPORT INFORMATION
  Report Type: 
  Country: None (occurrence: None)
  Receive Date: 20101103
  Receipt Date: 20101025
  Transmission Date: 20110411
  Serious: Yes (Disabling)
  Sender: FDA-Public Use
  Company Number: 2010SP057058

PATIENT
  Age: 17 Year
  Sex: Female
  Weight: 53.5244 kg

DRUGS (1)
  1. IMPLANON [Suspect]
     Indication: CONTRACEPTION
     Dosage: 1 DF;SBDE
     Route: 059
     Dates: start: 20101022, end: 20101023

REACTIONS (2)
  - MOVEMENT DISORDER [None]
  - OEDEMA PERIPHERAL [None]
